FAERS Safety Report 16156683 (Version 1)
Quarter: 2019Q2

REPORT INFORMATION
  Report Type: Spontaneous
  Country: US (occurrence: US)
  Receive Date: 20190404
  Receipt Date: 20190404
  Transmission Date: 20190711
  Serious: No
  Sender: FDA-Public Use
  Company Number: US-009507513-1903USA011210

PATIENT
  Age: 38 Year
  Sex: Female
  Weight: 89.8 kg

DRUGS (2)
  1. NUVARING [Suspect]
     Active Substance: ETHINYL ESTRADIOL\ETONOGESTREL
     Indication: MENSTRUAL CYCLE MANAGEMENT
     Dosage: 1 DOSAGE FORM
     Route: 067
     Dates: start: 201901, end: 20190309
  2. NUVARING [Suspect]
     Active Substance: ETHINYL ESTRADIOL\ETONOGESTREL
     Dosage: 1 DOSAGE FORM
     Route: 067
     Dates: start: 20190310

REACTIONS (5)
  - Product quality issue [Unknown]
  - Product use in unapproved indication [Unknown]
  - Accidental underdose [Unknown]
  - Vaginal haemorrhage [Recovered/Resolved]
  - Device expulsion [Recovered/Resolved]

NARRATIVE: CASE EVENT DATE: 201901
